FAERS Safety Report 5228429-2 (Version None)
Quarter: 2007Q1

REPORT INFORMATION
  Report Type: 
  Country: None (occurrence: None)
  Receive Date: 20070131
  Receipt Date: 20070131
  Transmission Date: 20070707
  Serious: No
  Sender: FDA-Public Use
  Company Number: None

PATIENT
  Age: 56 Year
  Sex: Female
  Weight: 89 kg

DRUGS (12)
  1. COUMADIN [Suspect]
     Indication: PULMONARY EMBOLISM
     Dosage: 3 MG DAILY PO
     Route: 048
     Dates: start: 20060717, end: 20060719
  2. COUMADIN [Suspect]
     Indication: THROMBOSIS PROPHYLAXIS
     Dosage: 3 MG DAILY PO
     Route: 048
     Dates: start: 20060717, end: 20060719
  3. PREDNISONE [Concomitant]
  4. PROTONIX [Concomitant]
  5. REGLAN [Concomitant]
  6. ZANTAC [Concomitant]
  7. ZOCOR [Concomitant]
  8. DEPAKOTE [Concomitant]
  9. EFFEXOR [Concomitant]
  10. FOLIC ACID [Concomitant]
  11. LASIX [Concomitant]
  12. NEURONTIN [Concomitant]

REACTIONS (2)
  - INTERNATIONAL NORMALISED RATIO INCREASED [None]
  - PROTHROMBIN TIME PROLONGED [None]
